FAERS Safety Report 23543198 (Version 1)
Quarter: 2024Q1

REPORT INFORMATION
  Report Type: Report from Study
  Country: JP (occurrence: JP)
  Receive Date: 20240220
  Receipt Date: 20240220
  Transmission Date: 20240410
  Serious: Yes (Life-Threatening, Other)
  Sender: FDA-Public Use
  Company Number: JP-ASTELLAS-2022JP012484

PATIENT
  Age: 77 Year
  Sex: Female
  Weight: 40.8 kg

DRUGS (3)
  1. ENFORTUMAB VEDOTIN [Suspect]
     Active Substance: ENFORTUMAB VEDOTIN
     Indication: Transitional cell carcinoma
     Dosage: 1.25 MG/KG, ONCE WEEKLY FOR 3 CONSECUTIVE WEEKS, AND INTERRUPTION AT WEEK 4
     Route: 041
     Dates: start: 20220331, end: 20220407
  2. ENFORTUMAB VEDOTIN [Suspect]
     Active Substance: ENFORTUMAB VEDOTIN
     Dosage: 1.25 MG/KG, ONCE WEEKLY FOR 3 CONSECUTIVE WEEKS, AND INTERRUPTION AT WEEK 4
     Route: 041
     Dates: start: 20220517, end: 20220628
  3. OLOPATADINE [Concomitant]
     Active Substance: OLOPATADINE
     Indication: Rash
     Route: 048
     Dates: start: 20220415, end: 20220621

REACTIONS (2)
  - Hyponatraemia [Recovered/Resolved]
  - Taste disorder [Recovered/Resolved]

NARRATIVE: CASE EVENT DATE: 20220621
